FAERS Safety Report 11167349 (Version 1)
Quarter: 2015Q2

REPORT INFORMATION
  Report Type: Report from Study
  Country: US (occurrence: US)
  Receive Date: 20150605
  Receipt Date: 20150605
  Transmission Date: 20150821
  Serious: Yes (Hospitalization)
  Sender: FDA-Public Use
  Company Number: US-BIOGENIDEC-2015BI074514

PATIENT
  Sex: Female

DRUGS (1)
  1. TECFIDERA [Suspect]
     Active Substance: DIMETHYL FUMARATE
     Indication: MULTIPLE SCLEROSIS

REACTIONS (8)
  - Cardiac failure congestive [Unknown]
  - Pneumonia [Unknown]
  - White blood cell count decreased [Unknown]
  - Urinary retention [Unknown]
  - Sepsis [Unknown]
  - Cystitis [Unknown]
  - Hypoaesthesia [Unknown]
  - Multiple sclerosis [Unknown]
